FAERS Safety Report 7973845-9 (Version None)
Quarter: 2011Q4

REPORT INFORMATION
  Report Type: 
  Country: None (occurrence: None)
  Receive Date: 20111213
  Receipt Date: 20111207
  Transmission Date: 20120403
  Serious: Yes (Other)
  Sender: FDA-Public Use
  Company Number: US-ROCHE-1020284

PATIENT
  Sex: Female

DRUGS (1)
  1. ZELBORAF [Suspect]
     Indication: PRODUCT USED FOR UNKNOWN INDICATION
     Dosage: UNKNOWN
     Route: 065

REACTIONS (8)
  - CARDIAC FLUTTER [None]
  - HOSPITALISATION [None]
  - DECREASED APPETITE [None]
  - BLOOD POTASSIUM DECREASED [None]
  - FATIGUE [None]
  - DEHYDRATION [None]
  - ARTHRALGIA [None]
  - MYALGIA [None]
